FAERS Safety Report 24956044 (Version 3)
Quarter: 2025Q2

REPORT INFORMATION
  Report Type: Report from Study
  Country: US (occurrence: US)
  Receive Date: 20250211
  Receipt Date: 20250415
  Transmission Date: 20250717
  Serious: Yes (Other)
  Sender: MALLINCKRODT
  Company Number: US-MALLINCKRODT-MNK202500585

PATIENT
  Sex: Female

DRUGS (4)
  1. CORTICOTROPIN [Suspect]
     Active Substance: CORTICOTROPIN
     Indication: Sarcoidosis
     Dates: start: 20201006
  2. CORTICOTROPIN [Suspect]
     Active Substance: CORTICOTROPIN
     Dates: start: 202412
  3. CORTICOTROPIN [Suspect]
     Active Substance: CORTICOTROPIN
  4. CORTICOTROPIN [Suspect]
     Active Substance: CORTICOTROPIN

REACTIONS (2)
  - Diabetes mellitus [Unknown]
  - Frustration tolerance decreased [Unknown]
